FAERS Safety Report 7420226-2 (Version None)
Quarter: 2011Q2

REPORT INFORMATION
  Report Type: 
  Country: None (occurrence: None)
  Receive Date: 20110418
  Receipt Date: 20110405
  Transmission Date: 20111010
  Serious: Yes (Death)
  Sender: FDA-Public Use
  Company Number: US-ACTELION-A-US2011-46843

PATIENT

DRUGS (3)
  1. TRACLEER [Suspect]
     Indication: PULMONARY ARTERIAL HYPERTENSION
     Dosage: 125 MG, BID
     Route: 048
     Dates: start: 20060801
  2. TRACLEER [Suspect]
     Dosage: 62.5 MG, BID
     Route: 048
     Dates: start: 20060701, end: 20060801
  3. VIAGRA [Concomitant]

REACTIONS (4)
  - RIGHT VENTRICULAR FAILURE [None]
  - CREST SYNDROME [None]
  - COR PULMONALE [None]
  - PULMONARY ARTERIAL HYPERTENSION [None]
